FAERS Safety Report 12125625 (Version 1)
Quarter: 2016Q1

REPORT INFORMATION
  Report Type: Spontaneous
  Country: US (occurrence: None)
  Receive Date: 20160226
  Receipt Date: 20160226
  Transmission Date: 20160526
  Serious: No
  Sender: FDA-Public Use
  Company Number: None

PATIENT
  Sex: Male

DRUGS (33)
  1. PROCHLOPERAZINE [Concomitant]
  2. HYDROCO/APAP [Concomitant]
     Active Substance: ACETAMINOPHEN\HYDROCODONE
  3. CYCLOBENZAPRINE [Concomitant]
     Active Substance: CYCLOBENZAPRINE
  4. SMZ-TMP [Concomitant]
     Active Substance: SULFAMETHOXAZOLE\TRIMETHOPRIM
  5. NINLARO [Suspect]
     Active Substance: IXAZOMIB
     Indication: PLASMA CELL MYELOMA
     Route: 048
     Dates: start: 20160106
  6. FLOMAX [Concomitant]
     Active Substance: TAMSULOSIN HYDROCHLORIDE
  7. MEGESTROL [Concomitant]
     Active Substance: MEGESTROL
  8. PHENAZOPYRIDINE. [Concomitant]
     Active Substance: PHENAZOPYRIDINE
  9. CIALIS [Concomitant]
     Active Substance: TADALAFIL
  10. FENTANYL. [Concomitant]
     Active Substance: FENTANYL
  11. ACYCLOVIR. [Concomitant]
     Active Substance: ACYCLOVIR
  12. REVLIMID [Concomitant]
     Active Substance: LENALIDOMIDE
  13. TAMIFLU [Concomitant]
     Active Substance: OSELTAMIVIR PHOSPHATE
  14. PROMETH/CODEINE [Concomitant]
  15. DEXAMETHASONE. [Concomitant]
     Active Substance: DEXAMETHASONE
  16. AMOXICILLIN. [Concomitant]
     Active Substance: AMOXICILLIN
  17. CEPHALEXIN. [Concomitant]
     Active Substance: CEPHALEXIN
  18. LORAZEPAM. [Concomitant]
     Active Substance: LORAZEPAM
  19. MORPHINE SULF [Concomitant]
     Active Substance: MORPHINE SULFATE
  20. LEVAQUIN [Concomitant]
     Active Substance: LEVOFLOXACIN
  21. ALLOPURINOL. [Concomitant]
     Active Substance: ALLOPURINOL
  22. ALPRAZOLAM. [Concomitant]
     Active Substance: ALPRAZOLAM
  23. ONDANSETRON [Concomitant]
     Active Substance: ONDANSETRON
  24. DIAZEPAM. [Concomitant]
     Active Substance: DIAZEPAM
  25. PROTONIX [Concomitant]
     Active Substance: PANTOPRAZOLE SODIUM
  26. OXYCODONE [Concomitant]
     Active Substance: OXYCODONE
  27. AZITHROMYCIN ANHYDROUS. [Concomitant]
     Active Substance: AZITHROMYCIN ANHYDROUS
  28. PROMETHAZINE [Concomitant]
     Active Substance: PROMETHAZINE\PROMETHAZINE HYDROCHLORIDE
  29. ASPIRIN. [Concomitant]
     Active Substance: ASPIRIN
  30. TRANSDERM SCOP [Concomitant]
     Active Substance: SCOPOLAMINE
  31. ACIPHEX [Concomitant]
     Active Substance: RABEPRAZOLE SODIUM
  32. CIPROFLOXACIN. [Concomitant]
     Active Substance: CIPROFLOXACIN
  33. WARFARIN [Concomitant]
     Active Substance: WARFARIN

REACTIONS (3)
  - Flatulence [None]
  - Nausea [None]
  - Diarrhoea [None]

NARRATIVE: CASE EVENT DATE: 2016
